FAERS Safety Report 4517962-4 (Version None)
Quarter: 2004Q4

REPORT INFORMATION
  Report Type: 
  Country: None (occurrence: None)
  Receive Date: 20041130
  Receipt Date: 20041117
  Transmission Date: 20050328
  Serious: Yes (Hospitalization)
  Sender: FDA-Public Use
  Company Number: STA-AE-04-MTX-576

PATIENT
  Age: 65 Year
  Sex: Female

DRUGS (3)
  1. RHEUMATREX [Suspect]
     Indication: RHEUMATOID ARTHRITIS
     Dosage: 4 MG 1X PER 1 WK, ORAL
     Route: 048
     Dates: start: 20040213, end: 20040524
  2. RHEUMATREX [Suspect]
     Dosage: 6 MG 1 X PER 1 WK, ORAL
     Route: 048
     Dates: start: 20040525, end: 20040627
  3. RHEUMATREX [Suspect]
     Dosage: 8 MG 1X PER WK, ORAL
     Route: 048
     Dates: start: 20040628, end: 20041019

REACTIONS (2)
  - BODY TEMPERATURE DECREASED [None]
  - INTERSTITIAL LUNG DISEASE [None]
